FAERS Safety Report 22208484 (Version 1)
Quarter: 2023Q2

REPORT INFORMATION
  Report Type: Spontaneous
  Country: CN (occurrence: CN)
  Receive Date: 20230413
  Receipt Date: 20230413
  Transmission Date: 20230722
  Serious: Yes (Other)
  Sender: FDA-Public Use
  Company Number: CN-BoehringerIngelheim-2023-BI-231238

PATIENT
  Age: 57 Year
  Sex: Female
  Weight: 65.000 kg

DRUGS (1)
  1. MOBIC [Suspect]
     Active Substance: MELOXICAM
     Indication: Arthralgia
     Route: 048
     Dates: start: 20230408, end: 20230408

REACTIONS (4)
  - Pruritus [Unknown]
  - Blister [Unknown]
  - Rash erythematous [Unknown]
  - Pain [Unknown]

NARRATIVE: CASE EVENT DATE: 20230409
